FAERS Safety Report 17890396 (Version 1)
Quarter: 2020Q2

REPORT INFORMATION
  Report Type: Spontaneous
  Country: US (occurrence: US)
  Receive Date: 20200612
  Receipt Date: 20200612
  Transmission Date: 20200714
  Serious: Yes (Other)
  Sender: FDA-Public Use
  Company Number: US-TEVA-2020-US-1246228

PATIENT
  Age: 27 Year
  Sex: Female
  Weight: 54.4 kg

DRUGS (2)
  1. VALTREX [Concomitant]
     Active Substance: VALACYCLOVIR HYDROCHLORIDE
     Indication: ORAL HERPES
     Dosage: ON AND OFF
  2. SEASONALE [Suspect]
     Active Substance: ETHINYL ESTRADIOL\LEVONORGESTREL
     Indication: CONTRACEPTION
     Route: 065
     Dates: start: 2012

REACTIONS (6)
  - Swelling [Unknown]
  - Necrotising fasciitis [Unknown]
  - Fatigue [Unknown]
  - Traumatic shock [Unknown]
  - Contusion [Unknown]
  - Erythema [Unknown]
